FAERS Safety Report 7091887-5 (Version None)
Quarter: 2010Q4

REPORT INFORMATION
  Report Type: 
  Country: None (occurrence: None)
  Receive Date: 20101101
  Receipt Date: 20101020
  Transmission Date: 20110411
  Serious: Yes (Death)
  Sender: FDA-Public Use
  Company Number: 1000010771

PATIENT
  Age: 29 Year
  Sex: Female

DRUGS (10)
  1. LEXAPRO [Suspect]
     Indication: DEPRESSION
     Dosage: 5 MG (5 MG,1 IN 1 D), ORAL ; 10 MG (10 MG,1 IN 1 D),ORAL
     Route: 048
     Dates: start: 20071026, end: 20071028
  2. LEXAPRO [Suspect]
     Indication: DEPRESSION
     Dosage: 5 MG (5 MG,1 IN 1 D), ORAL ; 10 MG (10 MG,1 IN 1 D),ORAL
     Route: 048
     Dates: start: 20071029
  3. EFFEXOR [Suspect]
     Indication: DEPRESSION
     Dosage: SEE IMAGE
     Route: 048
     Dates: start: 20040801, end: 20060101
  4. EFFEXOR [Suspect]
     Indication: DEPRESSION
     Dosage: SEE IMAGE
     Route: 048
     Dates: start: 20060401, end: 20061101
  5. EFFEXOR [Suspect]
     Indication: DEPRESSION
     Dosage: SEE IMAGE
     Route: 048
     Dates: start: 20061101, end: 20071001
  6. EFFEXOR [Suspect]
     Indication: DEPRESSION
     Dosage: SEE IMAGE
     Route: 048
     Dates: start: 20070701, end: 20071016
  7. EFFEXOR [Suspect]
     Indication: DEPRESSION
     Dosage: SEE IMAGE
     Route: 048
     Dates: start: 20071017
  8. ZOLOFT (SERTRALINE) (SERTRALINE) [Concomitant]
  9. ERYACNE (ERYTHROMYCIN) (GEL) (ERYTHROMYCIN) [Concomitant]
  10. HERBS (HERBALS NOS W/VITAMINS NOS) (HERBALS NOS W/VITAMINS NOS) [Concomitant]

REACTIONS (2)
  - COMPLETED SUICIDE [None]
  - DRUG EFFECT DECREASED [None]
